FAERS Safety Report 5106223-0 (Version None)
Quarter: 2006Q3

REPORT INFORMATION
  Report Type: 
  Country: None (occurrence: None)
  Receive Date: 20060912
  Receipt Date: 20060830
  Transmission Date: 20061208
  Serious: Yes (Other)
  Sender: FDA-Public Use
  Company Number: 2006106949

PATIENT

DRUGS (1)
  1. VFEND [Suspect]
     Indication: DRUG USE FOR UNKNOWN INDICATION
     Dosage: 600 MG, ORAL
     Route: 048
     Dates: start: 20060823

REACTIONS (4)
  - DELUSION [None]
  - HALLUCINATION [None]
  - HALLUCINATION, AUDITORY [None]
  - MANIA [None]
